FAERS Safety Report 4355920-3 (Version None)
Quarter: 2004Q2

REPORT INFORMATION
  Report Type: 
  Country: None (occurrence: None)
  Receive Date: 20040503
  Receipt Date: 20040414
  Transmission Date: 20050107
  Serious: Yes (Hospitalization)
  Sender: FDA-Public Use
  Company Number: 236357

PATIENT
  Age: 19 Year
  Sex: Male

DRUGS (4)
  1. NOVOSEVEN [Suspect]
     Indication: POST PROCEDURAL HAEMORRHAGE
     Dosage: 60 UG/KG, SINGLE
  2. RED BLOOD CELLS [Concomitant]
  3. PLASMA [Concomitant]
  4. PLATELET (DIPYRIDAMOLE) [Concomitant]

REACTIONS (5)
  - CEREBRAL VENOUS THROMBOSIS [None]
  - DISTURBANCE IN ATTENTION [None]
  - INFECTION [None]
  - MUSCLE HAEMORRHAGE [None]
  - MYDRIASIS [None]
